FAERS Safety Report 7921528-3 (Version None)
Quarter: 2011Q4

REPORT INFORMATION
  Report Type: 
  Country: None (occurrence: None)
  Receive Date: 20111117
  Receipt Date: 20111109
  Transmission Date: 20120403
  Serious: Yes (Hospitalization)
  Sender: FDA-Public Use
  Company Number: FR-B.I. PHARMACEUTICALS,INC./RIDGEFIELD-2011-FF-01036FF

PATIENT
  Age: 71 Year
  Sex: Female
  Weight: 120 kg

DRUGS (9)
  1. ATARAX [Concomitant]
  2. DIGOXIN [Concomitant]
  3. RISPERDAL [Concomitant]
  4. TRAMADOL HCL [Concomitant]
  5. SPIRONOLACTONE [Concomitant]
  6. NOZINAN [Concomitant]
  7. DEPAKOTE [Concomitant]
  8. PRADAXA [Suspect]
     Indication: ATRIAL FIBRILLATION
     Dosage: 220 MG
     Route: 048
  9. LEVOTHYROXINE SODIUM [Concomitant]

REACTIONS (4)
  - PROTHROMBIN TIME RATIO DECREASED [None]
  - DEMENTIA [None]
  - ERYSIPELAS [None]
  - ACTIVATED PARTIAL THROMBOPLASTIN TIME PROLONGED [None]
